FAERS Safety Report 7935220-2 (Version None)
Quarter: 2011Q4

REPORT INFORMATION
  Report Type: 
  Country: None (occurrence: None)
  Receive Date: 20111122
  Receipt Date: 20111118
  Transmission Date: 20120403
  Serious: Yes (Death, Hospitalization, Other)
  Sender: FDA-Public Use
  Company Number: US-CELGENEUS-163-50794-11062588

PATIENT
  Sex: Female
  Weight: 83.99 kg

DRUGS (16)
  1. VIDAZA [Suspect]
     Indication: MYELODYSPLASTIC SYNDROME
     Dosage: 150 MILLIGRAM/SQ. METER
     Route: 041
     Dates: start: 20110523, end: 20110527
  2. VITAMIN D [Concomitant]
     Route: 065
  3. OXYGEN [Concomitant]
     Route: 065
  4. PROCRIT [Concomitant]
     Dosage: 20,000 UNITS
     Route: 058
     Dates: start: 20110531, end: 20110531
  5. PRILOSEC [Concomitant]
     Dosage: 20 MILLIGRAM
     Route: 065
  6. STEROIDS [Concomitant]
     Route: 065
  7. AUGMENTIN [Concomitant]
     Route: 065
  8. SOLU-MEDROL [Concomitant]
     Route: 065
  9. PROCRIT [Concomitant]
     Dosage: 20,000 UNITS
     Route: 058
     Dates: start: 20110523, end: 20110523
  10. PROGESTERONE [Concomitant]
     Route: 061
  11. FISH OIL [Concomitant]
     Route: 065
  12. BENADRYL [Concomitant]
     Dosage: 25 MILLIGRAM
     Route: 048
     Dates: start: 20110617
  13. ROCEPHIN [Concomitant]
     Route: 065
     Dates: start: 20110613
  14. ZITHROMAX [Concomitant]
     Route: 065
  15. DECITABINE [Concomitant]
     Indication: CHEMOTHERAPY
     Route: 065
  16. CALCIUM [Concomitant]
     Route: 065

REACTIONS (9)
  - RESPIRATORY FAILURE [None]
  - DEATH [None]
  - HAEMOGLOBIN DECREASED [None]
  - RECTAL HAEMORRHAGE [None]
  - LEUKOCYTOCLASTIC VASCULITIS [None]
  - PLATELET COUNT DECREASED [None]
  - PYREXIA [None]
  - PETECHIAE [None]
  - PNEUMONIA PRIMARY ATYPICAL [None]
